FAERS Safety Report 20489309 (Version 1)
Quarter: 2022Q1

REPORT INFORMATION
  Report Type: Spontaneous
  Country: US (occurrence: None)
  Receive Date: 20220217
  Receipt Date: 20220217
  Transmission Date: 20220423
  Serious: Yes (Death)
  Sender: FDA-Public Use
  Company Number: None

PATIENT
  Sex: Female

DRUGS (7)
  1. BOTOX [Suspect]
     Active Substance: ONABOTULINUMTOXINA
     Dosage: MD TO INJECT 100 UNITS INTO HEAD AND NECK ARE EVERY 84-90 DAYS
     Dates: start: 20210908
  2. BOTOX [Suspect]
     Active Substance: ONABOTULINUMTOXINA
     Dosage: OTHER QUANTITY : 100 UNITS;?OTHER FREQUENCY : EVERY 84-90 DAYS;?
  3. GABAPENTIN [Concomitant]
     Active Substance: GABAPENTIN
  4. LAMOTRIGINE [Concomitant]
     Active Substance: LAMOTRIGINE
  5. MONTELUKAST SODIUM [Concomitant]
     Active Substance: MONTELUKAST SODIUM
  6. SERTRALINE [Concomitant]
     Active Substance: SERTRALINE HYDROCHLORIDE
  7. WARFARIN [Concomitant]
     Active Substance: WARFARIN

REACTIONS (1)
  - Death [None]
